FAERS Safety Report 5951047-5 (Version None)
Quarter: 2008Q4

REPORT INFORMATION
  Report Type: 
  Country: None (occurrence: None)
  Receive Date: 20081112
  Receipt Date: 20081027
  Transmission Date: 20090506
  Serious: Yes (Other)
  Sender: FDA-Public Use
  Company Number: KR-GILEAD-2008-0018421

PATIENT
  Age: 42 Year
  Sex: Male

DRUGS (1)
  1. HEPSERA [Suspect]

REACTIONS (8)
  - ASTHENIA [None]
  - BLOOD ALKALINE PHOSPHATASE INCREASED [None]
  - BONE PAIN [None]
  - BONE SCAN ABNORMAL [None]
  - HYPOPHOSPHATAEMIA [None]
  - NEPHROPATHY TOXIC [None]
  - OSTEOMALACIA [None]
  - OSTEOPOROSIS [None]
